FAERS Safety Report 6218246-9 (Version None)
Quarter: 2009Q2

REPORT INFORMATION
  Report Type: 
  Country: None (occurrence: None)
  Receive Date: 20090604
  Receipt Date: 20090604
  Transmission Date: 20091009
  Serious: No
  Sender: FDA-Public Use
  Company Number: None

PATIENT
  Sex: Male
  Weight: 95.2554 kg

DRUGS (1)
  1. LIPITOR [Suspect]
     Indication: BLOOD CHOLESTEROL INCREASED
     Dosage: 1 PILL 1 PER DAY PO
     Route: 048
     Dates: start: 19970101, end: 20090527

REACTIONS (4)
  - ASTHENIA [None]
  - MYALGIA [None]
  - PAIN [None]
  - PYREXIA [None]
